FAERS Safety Report 25659025 (Version 1)
Quarter: 2025Q3

REPORT INFORMATION
  Report Type: Spontaneous
  Country: US (occurrence: None)
  Receive Date: 20250807
  Receipt Date: 20250807
  Transmission Date: 20251020
  Serious: Yes (Death)
  Sender: FDA-CTU
  Company Number: None

PATIENT
  Age: 55 Year
  Sex: Female

DRUGS (11)
  1. BOTOX [Suspect]
     Active Substance: ONABOTULINUMTOXINA
     Indication: Migraine
     Dates: start: 20170706
  2. IADDERALL TAB [Concomitant]
  3. ADDERALL XR CAP [Concomitant]
  4. AMPHET/DEXTR CAP 20MG ER [Concomitant]
  5. AMPHET/DEXTR TAB [Concomitant]
  6. BENZONATATE CAP [Concomitant]
  7. CALCITRIOL [Concomitant]
     Active Substance: CALCITRIOL
  8. CHLORHEX GLU SOL 0.12% [Concomitant]
  9. DESMOPRESSIN ACETATE [Concomitant]
     Active Substance: DESMOPRESSIN ACETATE
  10. EMGALITY INJ [Concomitant]
  11. ESOMEPRA MAG CAP 40MG [Concomitant]

REACTIONS (1)
  - Death [None]

NARRATIVE: CASE EVENT DATE: 20250717
